FAERS Safety Report 7626866-X (Version None)
Quarter: 2011Q3

REPORT INFORMATION
  Report Type: 
  Country: None (occurrence: None)
  Receive Date: 20110721
  Receipt Date: 20110713
  Transmission Date: 20111222
  Serious: Yes (Hospitalization)
  Sender: FDA-Public Use
  Company Number: US-US-EMD SERONO, INC.-7071101

PATIENT
  Sex: Female

DRUGS (1)
  1. REBIF [Suspect]
     Indication: PRODUCT USED FOR UNKNOWN INDICATION
     Route: 058
     Dates: start: 20110217

REACTIONS (9)
  - PYREXIA [None]
  - FEELING HOT [None]
  - DEHYDRATION [None]
  - LOSS OF CONSCIOUSNESS [None]
  - ABDOMINAL PAIN UPPER [None]
  - VOMITING [None]
  - HEART RATE DECREASED [None]
  - DYSURIA [None]
  - INJECTION SITE PAIN [None]
